FAERS Safety Report 7945655-X (Version None)
Quarter: 2011Q4

REPORT INFORMATION
  Report Type: 
  Country: None (occurrence: None)
  Receive Date: 20111129
  Receipt Date: 20111124
  Transmission Date: 20120403
  Serious: Yes (Other)
  Sender: FDA-Public Use
  Company Number: TW-ROCHE-1000771

PATIENT
  Sex: Male

DRUGS (3)
  1. RECORMON [Suspect]
     Indication: NEPHROGENIC ANAEMIA
     Route: 058
     Dates: start: 20080219, end: 20100720
  2. RECORMON [Suspect]
     Route: 058
     Dates: start: 20101115, end: 20110920
  3. MIRCERA [Suspect]
     Indication: NEPHROGENIC ANAEMIA
     Route: 058
     Dates: start: 20100817, end: 20101019

REACTIONS (1)
  - ANAEMIA [None]
